FAERS Safety Report 9748907 (Version 3)
Quarter: 2014Q1

REPORT INFORMATION
  Report Type: Report from Study
  Country: US (occurrence: US)
  Receive Date: 20131212
  Receipt Date: 20140228
  Transmission Date: 20141002
  Serious: Yes (Hospitalization)
  Sender: FDA-Public Use
  Company Number: US-ASTELLAS-2013US012938

PATIENT
  Age: 66 Year
  Sex: Male

DRUGS (13)
  1. ERLOTINIB TABLET [Suspect]
     Indication: HEPATOCELLULAR CARCINOMA
     Dosage: 150 MG, UID/QD
     Route: 048
     Dates: start: 20130402, end: 20131214
  2. BEVACIZUMAB [Suspect]
     Indication: HEPATOCELLULAR CARCINOMA
     Dosage: 10 MG/KG, 2 TIMES A WEEK
     Route: 042
     Dates: start: 20130402, end: 20131119
  3. TENOFOVIR [Concomitant]
     Indication: PRODUCT USED FOR UNKNOWN INDICATION
     Dosage: UNK
     Route: 065
     Dates: start: 20111212
  4. INSULIN HUMAN INJECTION, ISOPHANE [Concomitant]
     Indication: PRODUCT USED FOR UNKNOWN INDICATION
     Dosage: UNK
     Route: 065
     Dates: start: 20130401
  5. LASIX                              /00032601/ [Concomitant]
     Indication: PRODUCT USED FOR UNKNOWN INDICATION
     Dosage: UNK
     Route: 065
     Dates: start: 20130219
  6. ALDACTONE                          /00006201/ [Concomitant]
     Indication: PRODUCT USED FOR UNKNOWN INDICATION
     Dosage: UNK
     Route: 065
     Dates: start: 20121015
  7. PROPRANOLOL [Concomitant]
     Indication: PRODUCT USED FOR UNKNOWN INDICATION
     Dosage: UNK
     Route: 065
     Dates: start: 20121015
  8. LUMIGAN [Concomitant]
     Indication: PRODUCT USED FOR UNKNOWN INDICATION
     Dosage: UNK
     Route: 065
  9. LEVOBUNOLOL HCL [Concomitant]
     Indication: PRODUCT USED FOR UNKNOWN INDICATION
     Dosage: UNK
     Route: 065
  10. PREDNISOLONE [Concomitant]
     Indication: PRODUCT USED FOR UNKNOWN INDICATION
     Dosage: UNK
     Route: 065
  11. POLYVINYL ALCOHOL [Concomitant]
     Indication: PRODUCT USED FOR UNKNOWN INDICATION
     Dosage: UNK
     Route: 065
  12. LACTULOSE [Concomitant]
     Indication: PRODUCT USED FOR UNKNOWN INDICATION
     Dosage: UNK
     Route: 065
     Dates: start: 20121224
  13. DOXYCYCLINE                        /00055702/ [Concomitant]
     Indication: PRODUCT USED FOR UNKNOWN INDICATION
     Dosage: UNK
     Route: 065
     Dates: start: 20130419

REACTIONS (4)
  - Off label use [Unknown]
  - Varices oesophageal [Unknown]
  - Haemorrhage [Unknown]
  - Gastrointestinal haemorrhage [Unknown]
